FAERS Safety Report 5255273-2 (Version None)
Quarter: 2007Q1

REPORT INFORMATION
  Report Type: 
  Country: None (occurrence: None)
  Receive Date: 20070228
  Receipt Date: 20070215
  Transmission Date: 20070707
  Serious: Yes (Death, Hospitalization)
  Sender: FDA-Public Use
  Company Number: CERZ-11434

PATIENT
  Age: 4 Year
  Sex: Male
  Weight: 13 kg

DRUGS (1)
  1. CEREZYME [Suspect]
     Indication: GAUCHER'S DISEASE
     Dosage: 800 UNITS Q2WKS IV
     Route: 042
     Dates: start: 20030904, end: 20061121

REACTIONS (4)
  - APNOEA [None]
  - GENERAL PHYSICAL HEALTH DETERIORATION [None]
  - REFUSAL OF TREATMENT BY RELATIVE [None]
  - RESPIRATORY FAILURE [None]
